FAERS Safety Report 7263083-X (Version None)
Quarter: 2011Q1

REPORT INFORMATION
  Report Type: 
  Country: None (occurrence: None)
  Receive Date: 20110130
  Receipt Date: 20100929
  Transmission Date: 20110831
  Serious: No
  Sender: FDA-Public Use
  Company Number: US-ABBOTT-10P-163-0675616-00

PATIENT
  Sex: Female
  Weight: 59.02 kg

DRUGS (13)
  1. LYRICA [Concomitant]
     Indication: FIBROMYALGIA
     Dosage: AS NEEDED TWICE DAILY
     Route: 048
  2. SOMA [Concomitant]
     Indication: MYALGIA
     Route: 048
  3. CYMBALTA [Concomitant]
     Indication: PANIC ATTACK
     Route: 048
  4. XANAX [Concomitant]
     Indication: NERVOUSNESS
     Route: 048
  5. PREMARIN [Concomitant]
     Indication: HORMONE REPLACEMENT THERAPY
     Dosage: BURGUNDY TABLET
     Route: 048
     Dates: start: 20070101
  6. METHOTREXATE [Concomitant]
     Indication: PRODUCT USED FOR UNKNOWN INDICATION
     Route: 048
  7. FOLIC ACID [Concomitant]
     Indication: PRODUCT USED FOR UNKNOWN INDICATION
     Route: 048
  8. SOMA [Concomitant]
     Indication: FIBROMYALGIA
  9. UNKNOWN ORAL CONTRACEPTIVE [Concomitant]
     Indication: CONTRACEPTION
     Dosage: GREEN PILL
     Route: 048
  10. LORTAB [Concomitant]
     Indication: PAIN
     Route: 048
  11. PREMARIN [Concomitant]
     Indication: HOT FLUSH
  12. HUMIRA [Suspect]
     Indication: RHEUMATOID ARTHRITIS
     Route: 058
     Dates: start: 20080101
  13. HUMIRA [Suspect]
     Route: 058
     Dates: start: 20100701

REACTIONS (15)
  - INCREASED TENDENCY TO BRUISE [None]
  - INSOMNIA [None]
  - RHINORRHOEA [None]
  - RHEUMATOID ARTHRITIS [None]
  - VISUAL IMPAIRMENT [None]
  - CHEST PAIN [None]
  - FATIGUE [None]
  - SINUSITIS [None]
  - TOOTHACHE [None]
  - DYSPNOEA [None]
  - BODY TEMPERATURE FLUCTUATION [None]
  - SKIN INFECTION [None]
  - STAPHYLOCOCCAL INFECTION [None]
  - INFLUENZA LIKE ILLNESS [None]
  - PNEUMONIA [None]
